FAERS Safety Report 19566109 (Version 1)
Quarter: 2021Q3

REPORT INFORMATION
  Report Type: Spontaneous
  Country: US (occurrence: US)
  Receive Date: 20210714
  Receipt Date: 20210714
  Transmission Date: 20211014
  Serious: Yes (Other)
  Sender: FDA-Public Use
  Company Number: US-ROCHE-2865199

PATIENT
  Sex: Female
  Weight: 21.2 kg

DRUGS (2)
  1. SPINRAZA [Concomitant]
     Active Substance: NUSINERSEN
  2. EVRYSDI [Suspect]
     Active Substance: RISDIPLAM
     Indication: SPINAL MUSCULAR ATROPHY
     Route: 065

REACTIONS (2)
  - Asthenia [Unknown]
  - Respiratory disorder [Unknown]
